FAERS Safety Report 20003865 (Version 2)
Quarter: 2022Q1

REPORT INFORMATION
  Report Type: Spontaneous
  Country: US (occurrence: US)
  Receive Date: 20211028
  Receipt Date: 20220311
  Transmission Date: 20220423
  Serious: Yes (Life-Threatening, Hospitalization, Other)
  Sender: FDA-Public Use
  Company Number: US-LUPIN PHARMACEUTICALS INC.-2021-20779

PATIENT
  Age: 38 Year
  Sex: Female

DRUGS (2)
  1. HYDROXYCHLOROQUINE [Suspect]
     Active Substance: HYDROXYCHLOROQUINE
     Indication: Product used for unknown indication
     Dosage: 27 GRAM-PILLS
     Route: 048
  2. POTASSIUM [Suspect]
     Active Substance: POTASSIUM
     Indication: Hypokalaemia
     Dosage: 240 MILLIEQUIVALENT-IN A SPAN OF 25 HOUR
     Route: 065

REACTIONS (8)
  - Shock [Recovering/Resolving]
  - Hypokalaemia [Recovering/Resolving]
  - Intentional overdose [Unknown]
  - Suicide attempt [Unknown]
  - Intentional product misuse [Unknown]
  - Conduction disorder [Unknown]
  - Toxicity to various agents [Unknown]
  - Hyperkalaemia [Recovering/Resolving]
